FAERS Safety Report 5426421-6 (Version None)
Quarter: 2007Q3

REPORT INFORMATION
  Report Type: 
  Country: None (occurrence: None)
  Receive Date: 20070827
  Receipt Date: 20070702
  Transmission Date: 20080115
  Serious: Yes (Other)
  Sender: FDA-Public Use
  Company Number: US-PURDUE-USA_2007_0028362

PATIENT
  Sex: Female

DRUGS (1)
  1. OXYCONTIN [Suspect]
     Indication: DRUG USE FOR UNKNOWN INDICATION
     Dosage: UNK MG, UNK
     Route: 048
     Dates: start: 19990101, end: 20050301

REACTIONS (4)
  - DRUG DEPENDENCE [None]
  - EMOTIONAL DISORDER [None]
  - MENTAL IMPAIRMENT [None]
  - SICK SINUS SYNDROME [None]
